FAERS Safety Report 14014414 (Version 3)
Quarter: 2017Q4

REPORT INFORMATION
  Report Type: Spontaneous
  Country: JP (occurrence: JP)
  Receive Date: 20170927
  Receipt Date: 20171106
  Transmission Date: 20180321
  Serious: Yes (Hospitalization)
  Sender: FDA-Public Use
  Company Number: JP-ROCHE-1998913

PATIENT
  Age: 3 Decade
  Sex: Female

DRUGS (2)
  1. ACTEMRA [Suspect]
     Active Substance: TOCILIZUMAB
     Route: 041
     Dates: start: 2017
  2. ACTEMRA [Suspect]
     Active Substance: TOCILIZUMAB
     Indication: JUVENILE IDIOPATHIC ARTHRITIS
     Route: 041
     Dates: start: 201705, end: 2017

REACTIONS (3)
  - Facial asymmetry [Recovering/Resolving]
  - Muscle atrophy [Recovered/Resolved]
  - Sclerema [Recovered/Resolved]

NARRATIVE: CASE EVENT DATE: 201707
